FAERS Safety Report 17180148 (Version 1)
Quarter: 2019Q4

REPORT INFORMATION
  Report Type: Spontaneous
  Country: US (occurrence: US)
  Receive Date: 20191219
  Receipt Date: 20191219
  Transmission Date: 20200122
  Serious: Yes (Death)
  Sender: FDA-Public Use
  Company Number: US-HORIZON-PRE-0566-2019

PATIENT
  Age: 55 Year
  Sex: Male

DRUGS (7)
  1. MELOXICAM. [Concomitant]
     Active Substance: MELOXICAM
     Dosage: 15 MG DAILY
  2. TRIMETHOPRIM-SULFAMETHOXAZOLE (TMP-SMX) [Concomitant]
     Indication: PROPHYLAXIS
     Dosage: 160 MG DAILY
  3. CELECOXIB. [Concomitant]
     Active Substance: CELECOXIB
     Indication: PAIN
     Dosage: 200 MG DAILY
  4. VITAMIN D3 [Concomitant]
     Active Substance: CHOLECALCIFEROL
     Dosage: 1000 IU DAILY
  5. PREDNISONE. [Suspect]
     Active Substance: PREDNISONE
     Indication: DERMATOMYOSITIS
     Dosage: 15MG DAILY;  INCREASED TO 80MG DAILY
  6. PREGABALIN. [Concomitant]
     Active Substance: PREGABALIN
     Dosage: 200 MG TWICE DAILY
  7. PANTOPRAZOLE [Concomitant]
     Active Substance: PANTOPRAZOLE
     Dosage: 40 MG DAILY

REACTIONS (2)
  - Pneumomediastinum [Fatal]
  - Pneumocystis jirovecii pneumonia [Fatal]
